FAERS Safety Report 6625987-8 (Version None)
Quarter: 2010Q1

REPORT INFORMATION
  Report Type: 
  Country: None (occurrence: None)
  Receive Date: 20100310
  Receipt Date: 20100301
  Transmission Date: 20100710
  Serious: Yes (Hospitalization)
  Sender: FDA-Public Use
  Company Number: JP-ABBOTT-10P-087-0622164-00

PATIENT
  Sex: Female
  Weight: 70.1 kg

DRUGS (3)
  1. CEFDINIR [Suspect]
     Indication: LARYNGEAL INJURY
     Route: 048
     Dates: start: 20091014, end: 20091015
  2. SOLANTAL [Suspect]
     Indication: LARYNGEAL INJURY
     Route: 048
     Dates: start: 20091014, end: 20091015
  3. SELBEX [Suspect]
     Indication: LARYNGEAL INJURY
     Dosage: REGIMEN #1.  50MG TID
     Route: 048
     Dates: start: 20091014, end: 20091015

REACTIONS (2)
  - ANAPHYLACTIC SHOCK [None]
  - DRUG ERUPTION [None]
